FAERS Safety Report 16005037 (Version 1)
Quarter: 2019Q1

REPORT INFORMATION
  Report Type: Spontaneous
  Country: US (occurrence: US)
  Receive Date: 20190225
  Receipt Date: 20190225
  Transmission Date: 20190418
  Serious: Yes (Disabling)
  Sender: FDA-Public Use
  Company Number: None

PATIENT
  Age: 43 Year
  Sex: Female
  Weight: 52.16 kg

DRUGS (1)
  1. TUBERCULIN PURIFIED PROTEIN [Suspect]
     Active Substance: TUBERCULIN PURIFIED PROTEIN DERIVATIVE (MANTOUX)

REACTIONS (4)
  - Erythema [None]
  - Skin irritation [None]
  - Arthralgia [None]
  - Dermatitis [None]

NARRATIVE: CASE EVENT DATE: 20180805
